FAERS Safety Report 18485628 (Version 1)
Quarter: 2020Q4

REPORT INFORMATION
  Report Type: Spontaneous
  Country: US (occurrence: US)
  Receive Date: 20201110
  Receipt Date: 20201110
  Transmission Date: 20210114
  Serious: No
  Sender: FDA-Public Use
  Company Number: None

PATIENT
  Age: 67 Year
  Sex: Male
  Weight: 71.4 kg

DRUGS (3)
  1. CAPECITABINE. [Suspect]
     Active Substance: CAPECITABINE
     Indication: METASTASES TO LYMPH NODES
     Route: 048
     Dates: start: 20201021, end: 20201109
  2. CAPECITABINE. [Suspect]
     Active Substance: CAPECITABINE
     Indication: METASTASES TO LYMPH NODES
     Route: 048
     Dates: start: 20201021, end: 20201109
  3. LEVOTHYROXINE 50MCG [Concomitant]
     Active Substance: LEVOTHYROXINE

REACTIONS (2)
  - Rash [None]
  - Decreased appetite [None]

NARRATIVE: CASE EVENT DATE: 20201109
